FAERS Safety Report 6096654-7 (Version None)
Quarter: 2009Q1

REPORT INFORMATION
  Report Type: 
  Country: None (occurrence: None)
  Receive Date: 20090227
  Receipt Date: 20090127
  Transmission Date: 20090719
  Serious: No
  Sender: FDA-Public Use
  Company Number: US-BAYER-200912122NA

PATIENT
  Age: 29 Year
  Sex: Female
  Weight: 113 kg

DRUGS (2)
  1. YAZ [Suspect]
     Indication: CONTRACEPTION
     Route: 048
     Dates: start: 20070101
  2. ORTHO TRI-CYCLEN LO [Concomitant]
     Dates: start: 20060101, end: 20070101

REACTIONS (2)
  - AMENORRHOEA [None]
  - MENSTRUATION IRREGULAR [None]
